FAERS Safety Report 20793925 (Version 3)
Quarter: 2022Q3

REPORT INFORMATION
  Report Type: Spontaneous
  Country: US (occurrence: US)
  Receive Date: 20220506
  Receipt Date: 20220726
  Transmission Date: 20221027
  Serious: Yes (Death, Hospitalization, Other)
  Sender: FDA-Public Use
  Company Number: US-TEVA-2022-US-2034307

PATIENT
  Age: 66 Year
  Sex: Female
  Weight: 86.2 kg

DRUGS (5)
  1. HYDROCHLOROTHIAZIDE\VALSARTAN [Suspect]
     Active Substance: HYDROCHLOROTHIAZIDE\VALSARTAN
     Indication: Hypertension
     Dosage: 80/12.5MG X 60 X 11 FILLS
     Dates: start: 20140216, end: 20150527
  2. HYDROCHLOROTHIAZIDE\VALSARTAN [Suspect]
     Active Substance: HYDROCHLOROTHIAZIDE\VALSARTAN
     Indication: Hypertension
     Dosage: 80/12.5MG X 30 X 23 FILLS
     Dates: start: 20160519, end: 20180820
  3. HYDROCHLOROTHIAZIDE\VALSARTAN [Suspect]
     Active Substance: HYDROCHLOROTHIAZIDE\VALSARTAN
     Indication: Hypertension
     Dosage: 80-12.5MG , IN -2013, 2015, 2016
  4. HYDROCHLOROTHIAZIDE\VALSARTAN [Suspect]
     Active Substance: HYDROCHLOROTHIAZIDE\VALSARTAN
     Indication: Hypertension
     Dosage: 80-12.5MG, IN -2017
  5. ESTROPIPATE [Concomitant]
     Active Substance: ESTROPIPATE
     Indication: Hormone therapy
     Dosage: DAILY
     Dates: start: 20050101, end: 20091225

REACTIONS (13)
  - Colorectal cancer metastatic [Fatal]
  - Intestinal obstruction [Fatal]
  - Metastases to liver [Not Recovered/Not Resolved]
  - Hypokalaemia [Unknown]
  - Failure to thrive [Unknown]
  - Nausea [Unknown]
  - Fatigue [Unknown]
  - Weight decreased [Unknown]
  - Decreased appetite [Unknown]
  - Decreased appetite [Unknown]
  - Pain [Unknown]
  - Malnutrition [Unknown]
  - Hyponatraemia [Unknown]

NARRATIVE: CASE EVENT DATE: 20200101
